FAERS Safety Report 22205579 (Version 2)
Quarter: 2023Q2

REPORT INFORMATION
  Report Type: Spontaneous
  Country: CA (occurrence: CA)
  Receive Date: 20230413
  Receipt Date: 20230511
  Transmission Date: 20230722
  Serious: Yes (Hospitalization, Other)
  Sender: FDA-Public Use
  Company Number: CA-ORGANON-O2304CAN000798

PATIENT
  Age: 86 Year
  Sex: Female

DRUGS (26)
  1. FOSAMAX [Suspect]
     Active Substance: ALENDRONATE SODIUM
     Indication: Product used for unknown indication
     Dosage: UNK
     Route: 065
  2. SINGULAIR [Suspect]
     Active Substance: MONTELUKAST SODIUM
     Indication: Product used for unknown indication
     Dosage: UNK; DOSAGE FORM : NOT SPECIFIED
     Route: 065
  3. ACETAMINOPHEN [Suspect]
     Active Substance: ACETAMINOPHEN
     Indication: Product used for unknown indication
     Dosage: UNK; DOSAGE FORM: NOT SPECIFIED
     Route: 065
  4. BISOPROLOL [Suspect]
     Active Substance: BISOPROLOL
     Indication: Product used for unknown indication
     Dosage: UNK
     Route: 065
  5. BUDESONIDE\FORMOTEROL FUMARATE [Suspect]
     Active Substance: BUDESONIDE\FORMOTEROL FUMARATE
     Indication: Product used for unknown indication
     Dosage: UNK; DOSAGE FORM : NOT SPECIFIED
  6. DIAZEPAM [Suspect]
     Active Substance: DIAZEPAM
     Indication: Product used for unknown indication
     Dosage: UNK; DOSAGE FORM : NOT SPECIFIED
     Route: 065
  7. ESCITALOPRAM OXALATE [Suspect]
     Active Substance: ESCITALOPRAM OXALATE
     Indication: Product used for unknown indication
     Dosage: 10 MILLIGRAM, 1 EVERY 1 DAYS
     Route: 065
  8. FERROUS GLUCONATE [Suspect]
     Active Substance: FERROUS GLUCONATE
     Indication: Product used for unknown indication
     Dosage: 0.125 MILLIGRAM, 1 EVERY 1 DAYS
     Route: 065
  9. FORMOTEROL FUMARATE [Suspect]
     Active Substance: FORMOTEROL FUMARATE
     Indication: Product used for unknown indication
     Dosage: UNK, DOSAGE FORM: NOT SPECIFIED
  10. FUROSEMIDE [Suspect]
     Active Substance: FUROSEMIDE
     Indication: Product used for unknown indication
     Dosage: UNK; DOSAGE FORM : NOT SPECIFIED
     Route: 065
  11. MELOXICAM [Suspect]
     Active Substance: MELOXICAM
     Indication: Product used for unknown indication
     Dosage: UNK; DOSAGE FORM : NOT SPECIFIED
     Route: 065
  12. MEPOLIZUMAB [Suspect]
     Active Substance: MEPOLIZUMAB
     Indication: Product used for unknown indication
     Dosage: 100 MILLIGRAM
     Route: 065
  13. OMALIZUMAB [Suspect]
     Active Substance: OMALIZUMAB
     Indication: Product used for unknown indication
     Dosage: UNK
     Route: 065
  14. RABEPRAZOLE SODIUM [Suspect]
     Active Substance: RABEPRAZOLE SODIUM
     Indication: Product used for unknown indication
     Dosage: 10 MILLIGRAM, 1 EVERY 1 DAYS; DOSAGE FORM: TABLET (ENTERIC-COATED)
     Route: 048
  15. RABEPRAZOLE SODIUM [Suspect]
     Active Substance: RABEPRAZOLE SODIUM
     Dosage: 10 MILLIGRAM, 1 EVERY 1 DAYS,(DOSAGE FORM AS TABLET (ENTERIC COATED)
     Route: 065
  16. PREDNISONE [Suspect]
     Active Substance: PREDNISONE
     Indication: Product used for unknown indication
     Dosage: UNK (DOSAGE FORM: NOT SPECIFIED)
     Route: 065
  17. PULMICORT TURBUHALER [Suspect]
     Active Substance: BUDESONIDE
     Indication: Product used for unknown indication
     Dosage: UNK; DOSAGE FORM : NOT SPECIFIED
  18. PULMICORT TURBUHALER [Suspect]
     Active Substance: BUDESONIDE
     Dosage: UNK; DOSAGE FORM : NOT SPECIFIED
  19. ROSUVASTATIN CALCIUM [Suspect]
     Active Substance: ROSUVASTATIN CALCIUM
     Indication: Product used for unknown indication
     Dosage: 10 MILLIGRAM, 1 EVERY 1 DAYS
     Route: 048
  20. ROSUVASTATIN CALCIUM [Suspect]
     Active Substance: ROSUVASTATIN CALCIUM
     Dosage: 10 MILLIGRAM, 1 EVERY 1 DAYS
     Route: 048
  21. ALBUTEROL [Suspect]
     Active Substance: ALBUTEROL
     Indication: Product used for unknown indication
     Dosage: UNK (DOSAGE FORM: NOT SPECIFIED)
     Route: 065
  22. SPIRONOLACTONE [Suspect]
     Active Substance: SPIRONOLACTONE
     Indication: Product used for unknown indication
     Dosage: UNK
     Route: 048
  23. SYNTHROID [Suspect]
     Active Substance: LEVOTHYROXINE SODIUM
     Indication: Product used for unknown indication
     Dosage: UNK; DOSAGE FORM : NOT SPECIFIED
     Route: 065
  24. TIOTROPIUM [Suspect]
     Active Substance: TIOTROPIUM
     Indication: Product used for unknown indication
     Dosage: 2 DOSAGE FORM, 1 EVERY 1 DAYS
     Route: 065
  25. TRICHLORMETHIAZIDE [Suspect]
     Active Substance: TRICHLORMETHIAZIDE
     Indication: Product used for unknown indication
     Dosage: UNK; DOSAGE FORM : NOT SPECIFIED
     Route: 065
  26. VENTOLIN [Suspect]
     Active Substance: ALBUTEROL SULFATE
     Indication: Product used for unknown indication
     Dosage: UNK; DOSAGE FORM : NOT SPECIFIED
     Route: 065

REACTIONS (15)
  - Bronchial secretion retention [Unknown]
  - Cough [Unknown]
  - Drug ineffective [Unknown]
  - Dyspnoea [Unknown]
  - Eosinophil count increased [Unknown]
  - Full blood count abnormal [Unknown]
  - Multiple allergies [Unknown]
  - Obstructive airways disorder [Unknown]
  - Pneumonia [Unknown]
  - Pulmonary mass [Unknown]
  - Respiratory tract infection [Unknown]
  - Reversible airways obstruction [Unknown]
  - Sputum culture positive [Unknown]
  - Upper-airway cough syndrome [Unknown]
  - Vital capacity decreased [Unknown]
